FAERS Safety Report 7362994-4 (Version None)
Quarter: 2011Q1

REPORT INFORMATION
  Report Type: 
  Country: None (occurrence: None)
  Receive Date: 20110321
  Receipt Date: 20110311
  Transmission Date: 20110831
  Serious: Yes (Other)
  Sender: FDA-Public Use
  Company Number: US-PFIZER INC-2007036388

PATIENT
  Age: 58 Year
  Sex: Male

DRUGS (3)
  1. NEURONTIN [Suspect]
     Indication: NECK PAIN
     Dosage: 300 MG, 3X/DAY
     Route: 048
     Dates: start: 20020901
  2. NEURONTIN [Suspect]
     Indication: BACK PAIN
  3. NEURONTIN [Suspect]
     Indication: RADICULOPATHY

REACTIONS (2)
  - HYPERTENSION [None]
  - AMNESIA [None]
